FAERS Safety Report 8447672-2 (Version None)
Quarter: 2012Q2

REPORT INFORMATION
  Report Type: 
  Country: None (occurrence: None)
  Receive Date: 20120619
  Receipt Date: 20120615
  Transmission Date: 20120825
  Serious: Yes (Other)
  Sender: FDA-Public Use
  Company Number: US-PFIZER INC-2012145646

PATIENT
  Sex: Male

DRUGS (20)
  1. NITROSTAT [Suspect]
     Indication: CHEST PAIN
     Dosage: 0.4 MG, (MAY REPEAT EVERY 5 MINUTES)
     Route: 060
  2. PRINIVIL [Concomitant]
     Dosage: 20 MG, UNK
  3. COUMADIN [Concomitant]
     Dosage: 4 MG, UNK
  4. ZOCOR [Concomitant]
     Dosage: 20 MG, UNK
  5. ULTRAM [Concomitant]
     Dosage: 50 MG, UNK
  6. FLOMAX [Concomitant]
     Dosage: 0.4 MG, UNK
  7. COLACE [Concomitant]
     Dosage: 100 MG, UNK
  8. PRILOSEC [Concomitant]
     Dosage: 20 MG, UNK
  9. IMDUR [Concomitant]
     Dosage: 30 MG, UNK
  10. CHRONULAC [Concomitant]
     Dosage: 10 GM/ 15 ML SOLUTION
  11. DULCOLAX [Concomitant]
     Dosage: 5 MG, UNK
  12. TENORETIC 100 [Concomitant]
     Dosage: 100-25 MG
  13. LASIX [Concomitant]
     Dosage: 40 MG, UNK
  14. ZESTRIL [Concomitant]
     Dosage: 20 MG, UNK
  15. COUMADIN [Concomitant]
     Dosage: 3 MG, UNK
  16. RISPERDAL [Concomitant]
     Dosage: 0.5 MG, UNK
  17. FLONASE [Concomitant]
     Dosage: 50 UG/ACT
  18. CELEXA [Concomitant]
     Dosage: 20 MG, UNK
  19. ARICEPT [Concomitant]
     Dosage: 10 MG, UNK
  20. NEURONTIN [Concomitant]
     Dosage: 400 MG, UNK

REACTIONS (8)
  - TYPE 2 DIABETES MELLITUS [None]
  - CEREBROVASCULAR ACCIDENT [None]
  - DIABETIC NEUROPATHY [None]
  - BENIGN PROSTATIC HYPERPLASIA [None]
  - HYPERTENSION [None]
  - CORONARY ARTERY DISEASE [None]
  - AFFECTIVE DISORDER [None]
  - CEREBROVASCULAR DISORDER [None]
